FAERS Safety Report 20798184 (Version 1)
Quarter: 2022Q2

REPORT INFORMATION
  Report Type: Spontaneous
  Country: US (occurrence: US)
  Receive Date: 20220507
  Receipt Date: 20220507
  Transmission Date: 20220720
  Serious: No
  Sender: FDA-Public Use
  Company Number: US-SA-SAC20220427000196

PATIENT
  Sex: Female

DRUGS (2)
  1. LANTUS [Suspect]
     Active Substance: INSULIN GLARGINE
     Dosage: DOSE: INJ 100/ML
  2. TRULICITY [Suspect]
     Active Substance: DULAGLUTIDE
     Dosage: UNK; DOSE: 0.75 MG IN 0.5 ML

REACTIONS (1)
  - Rash [Not Recovered/Not Resolved]
